FAERS Safety Report 26020551 (Version 1)
Quarter: 2025Q4

REPORT INFORMATION
  Report Type: Spontaneous
  Country: US (occurrence: None)
  Receive Date: 20251109
  Receipt Date: 20251109
  Transmission Date: 20260118
  Serious: Yes (Disabling, Other)
  Sender: FDA-CTU
  Company Number: None

PATIENT
  Age: 56 Year
  Sex: Female
  Weight: 67.5 kg

DRUGS (5)
  1. SUTAB [Suspect]
     Active Substance: MAGNESIUM SULFATE\POTASSIUM CHLORIDE\SODIUM SULFATE
     Indication: Colonoscopy
     Dosage: 12 TABLET(S) EVENING/MORNING ORAL
     Route: 048
     Dates: start: 20251105, end: 20251105
  2. TRAZODONE [Concomitant]
     Active Substance: TRAZODONE HYDROCHLORIDE
  3. PROMETHAZINE [Concomitant]
     Active Substance: PROMETHAZINE HYDROCHLORIDE
  4. Claunidine [Concomitant]
  5. OXYCODONE [Concomitant]
     Active Substance: OXYCODONE

REACTIONS (12)
  - Nausea [None]
  - Hypophagia [None]
  - Abdominal pain [None]
  - Abdominal pain [None]
  - Retching [None]
  - Rectal spasm [None]
  - Constipation [None]
  - Dehydration [None]
  - Tremor [None]
  - Hyperhidrosis [None]
  - Gastrointestinal pain [None]
  - Drug hypersensitivity [None]

NARRATIVE: CASE EVENT DATE: 20251105
